FAERS Safety Report 9119281 (Version 1)
Quarter: 2013Q1

REPORT INFORMATION
  Report Type: Spontaneous
  Country: MX (occurrence: None)
  Receive Date: 20130130
  Receipt Date: 20130130
  Transmission Date: 20140127
  Serious: Yes (Death)
  Sender: FDA-Public Use
  Company Number: ENTC2013-0026

PATIENT
  Age: 89 Year
  Sex: Male

DRUGS (1)
  1. STALEVO (LEVODOPA, CARBIDOPA, ENTACAPONE) [Suspect]
     Indication: PARKINSON^S DISEASE
     Dosage: 3 TABLETS (12.5/50/200 MG) DAILY, ORAL
     Route: 048
     Dates: start: 20100929

REACTIONS (1)
  - Death [None]
